FAERS Safety Report 15036632 (Version 1)
Quarter: 2018Q2

REPORT INFORMATION
  Report Type: Spontaneous
  Country: US (occurrence: US)
  Receive Date: 20180620
  Receipt Date: 20180620
  Transmission Date: 20180711
  Serious: No
  Sender: FDA-Public Use
  Company Number: US-PFIZER INC-2018246726

PATIENT
  Age: 65 Year
  Sex: Male

DRUGS (2)
  1. CELEBREX [Suspect]
     Active Substance: CELECOXIB
     Dosage: 100 MG, UNK
  2. CELEBREX [Suspect]
     Active Substance: CELECOXIB
     Indication: INFLAMMATION
     Dosage: 200 MG, UNK

REACTIONS (5)
  - Abdominal pain upper [Unknown]
  - Blood pressure increased [Unknown]
  - Gastrointestinal sounds abnormal [Unknown]
  - Abdominal discomfort [Not Recovered/Not Resolved]
  - Diarrhoea [Not Recovered/Not Resolved]
